FAERS Safety Report 9009313 (Version 1)
Quarter: 2013Q1

REPORT INFORMATION
  Report Type: Report from Study
  Country: US (occurrence: US)
  Receive Date: 20130111
  Receipt Date: 20130111
  Transmission Date: 20140127
  Serious: Yes (Hospitalization)
  Sender: FDA-Public Use
  Company Number: US-ABBOTT-13P-163-1031022-00

PATIENT
  Age: 51 None
  Sex: Female
  Weight: 81.72 kg

DRUGS (3)
  1. HUMIRA [Suspect]
     Indication: CROHN^S DISEASE
     Route: 058
     Dates: start: 20111214, end: 201211
  2. UNKNOWN MEDICATION [Concomitant]
     Indication: DIURETIC THERAPY
  3. PREDNISONE [Concomitant]
     Indication: CROHN^S DISEASE
     Dosage: DAILY

REACTIONS (5)
  - Intestinal ulcer [Recovered/Resolved]
  - Fistula [Recovered/Resolved]
  - Crohn^s disease [Recovering/Resolving]
  - Thrombosis [Recovering/Resolving]
  - Wound [Not Recovered/Not Resolved]
